FAERS Safety Report 7978167-8 (Version None)
Quarter: 2011Q4

REPORT INFORMATION
  Report Type: 
  Country: None (occurrence: None)
  Receive Date: 20111214
  Receipt Date: 20111206
  Transmission Date: 20120403
  Serious: Yes (Death, Hospitalization, Other)
  Sender: FDA-Public Use
  Company Number: US-ELI_LILLY_AND_COMPANY-US201108008382

PATIENT
  Sex: Female
  Weight: 63.492 kg

DRUGS (1)
  1. FORTEO [Suspect]
     Indication: OSTEOPOROSIS
     Dosage: 20 UG, QD
     Route: 058
     Dates: start: 20110726

REACTIONS (5)
  - DYSPNOEA [None]
  - FAECALURIA [None]
  - URINARY TRACT INFECTION [None]
  - ACUTE RESPIRATORY FAILURE [None]
  - ASTHENIA [None]
